FAERS Safety Report 10906564 (Version 2)
Quarter: 2015Q1

REPORT INFORMATION
  Report Type: Spontaneous
  Country: JP (occurrence: JP)
  Receive Date: 20150312
  Receipt Date: 20150325
  Transmission Date: 20150721
  Serious: Yes (Life-Threatening, Other)
  Sender: FDA-Public Use
  Company Number: JP-ROCHE-1542906

PATIENT
  Age: 65 Year
  Sex: Male
  Weight: 62 kg

DRUGS (14)
  1. CELLCEPT [Suspect]
     Active Substance: MYCOPHENOLATE MOFETIL\MYCOPHENOLATE MOFETIL HYDROCHLORIDE
     Indication: PRODUCT USED FOR UNKNOWN INDICATION
     Dosage: DOSAGE IS UNCERTAIN.
     Route: 048
     Dates: start: 20101117, end: 20140129
  2. TACROLIMUS HYDRATE [Suspect]
     Active Substance: TACROLIMUS
     Indication: PRODUCT USED FOR UNKNOWN INDICATION
     Dosage: DOSAGE IS UNCERTAIN
     Route: 065
     Dates: end: 20140123
  3. BAYASPIRIN [Concomitant]
     Active Substance: ASPIRIN
     Indication: MYOCARDIAL INFARCTION
     Route: 048
     Dates: start: 200903, end: 20140124
  4. WARFARIN [Concomitant]
     Active Substance: WARFARIN
     Indication: ATRIAL FIBRILLATION
     Route: 048
     Dates: start: 2004, end: 20140119
  5. ARICEPT [Concomitant]
     Active Substance: DONEPEZIL HYDROCHLORIDE
     Indication: DEMENTIA
     Route: 048
     Dates: start: 201206, end: 20140224
  6. MEDROL [Concomitant]
     Active Substance: METHYLPREDNISOLONE
     Indication: DIABETIC NEPHROPATHY
     Route: 048
     Dates: start: 20101117, end: 20140124
  7. GRACEPTOR [Suspect]
     Active Substance: TACROLIMUS
     Indication: DIABETIC NEPHROPATHY
     Route: 048
     Dates: start: 20111221, end: 20140123
  8. NEORAL [Suspect]
     Active Substance: CYCLOSPORINE
     Indication: DIABETIC NEPHROPATHY
     Route: 048
     Dates: start: 201011, end: 20111220
  9. PREDNISOLONE. [Concomitant]
     Active Substance: PREDNISOLONE
     Dosage: DOSAGE IS UNCERTAIN.
     Route: 065
  10. TAKEPRON [Concomitant]
     Active Substance: LANSOPRAZOLE
     Indication: PROPHYLAXIS
     Route: 048
     Dates: end: 20140227
  11. GASLON N [Concomitant]
     Indication: PROPHYLAXIS
     Route: 048
     Dates: start: 201012, end: 20140124
  12. NEORAL [Suspect]
     Active Substance: CYCLOSPORINE
     Dosage: DOSAGE IS UNCERTAIN
     Route: 048
     Dates: start: 20140123, end: 20140129
  13. MAINTATE [Concomitant]
     Active Substance: BISOPROLOL FUMARATE
     Indication: ATRIAL FIBRILLATION
     Route: 048
     Dates: start: 201104, end: 20140220
  14. HARNAL [Concomitant]
     Active Substance: TAMSULOSIN HYDROCHLORIDE
     Indication: BENIGN PROSTATIC HYPERPLASIA
     Route: 048
     Dates: start: 201012, end: 20140124

REACTIONS (4)
  - Muscle haemorrhage [Unknown]
  - Sepsis [Recovering/Resolving]
  - Gastroenteritis staphylococcal [Unknown]
  - Post transplant lymphoproliferative disorder [Recovering/Resolving]

NARRATIVE: CASE EVENT DATE: 20140119
